FAERS Safety Report 8970701 (Version 1)
Quarter: 2012Q4

REPORT INFORMATION
  Report Type: 
  Country: US (occurrence: US)
  Receive Date: 20121218
  Receipt Date: 20121218
  Transmission Date: 20130627
  Serious: No
  Sender: FDA-Public Use
  Company Number: US-GLAXOSMITHKLINE-A0992997A

PATIENT
  Age: 47 Year
  Sex: Female

DRUGS (6)
  1. NICORETTE [Suspect]
     Indication: EX-TOBACCO USER
  2. NICODERM CQ [Suspect]
     Indication: EX-TOBACCO USER
     Dates: start: 20120430
  3. NICODERM CQ [Suspect]
     Indication: EX-TOBACCO USER
  4. NICODERM CQ [Suspect]
     Indication: EX-TOBACCO USER
  5. NICORETTE NICOTINE POLACRILEX LOZENGE, 2MG [Suspect]
     Indication: EX-TOBACCO USER
  6. NICOTINE [Suspect]
     Indication: EX-TOBACCO USER

REACTIONS (5)
  - Salivary hypersecretion [Unknown]
  - Product quality issue [Unknown]
  - Drug administration error [Unknown]
  - Drug ineffective [Unknown]
  - Feeling abnormal [Unknown]
